FAERS Safety Report 26181887 (Version 1)
Quarter: 2025Q4

REPORT INFORMATION
  Report Type: Spontaneous
  Country: EU (occurrence: EU)
  Receive Date: 20251221
  Receipt Date: 20251221
  Transmission Date: 20260118
  Serious: Yes (Hospitalization)
  Sender: ABBVIE
  Company Number: None

PATIENT
  Age: 25 Year
  Sex: Female

DRUGS (4)
  1. BOTOX [Suspect]
     Active Substance: ONABOTULINUMTOXINA
     Indication: Analgesic therapy
     Dosage: TIME INTERVAL: AS NECESSARY: TOTAL 40 UNITS DIVIDED INTO 4 INSERTS
     Route: 030
     Dates: start: 20220706, end: 20220706
  2. BOTOX [Suspect]
     Active Substance: ONABOTULINUMTOXINA
     Indication: Analgesic therapy
     Dosage: TIME INTERVAL: AS NECESSARY: TOTAL 40 UNITS DIVIDED INTO 4 INSERTS
     Route: 030
     Dates: start: 20251203, end: 20251203
  3. BUPIVACAINE [Suspect]
     Active Substance: BUPIVACAINE
     Indication: Nerve block
     Dosage: 5 MG/ML, 4 ML ON THE RIGHT AND LEFT SIDES RESPECTIVELY (GREATER OCCIPITAL NERVE BLOCKADE)
     Route: 050
     Dates: start: 20220706, end: 20251203
  4. BUPIVACAINE [Suspect]
     Active Substance: BUPIVACAINE
     Indication: Nerve block
     Dosage: 5 MG/ML, 4 ML ON THE RIGHT AND LEFT SIDES RESPECTIVELY (GREATER OCCIPITAL NERVE BLOCKADE)
     Route: 050
     Dates: start: 20220706, end: 20251203

REACTIONS (5)
  - Tachycardia [Recovered/Resolved]
  - Dyspnoea [Recovered/Resolved]
  - Anaphylactic reaction [Recovered/Resolved]
  - Pallor [Recovered/Resolved]
  - Nausea [Unknown]

NARRATIVE: CASE EVENT DATE: 20251203
